FAERS Safety Report 20920908 (Version 1)
Quarter: 2022Q2

REPORT INFORMATION
  Report Type: Spontaneous
  Country: BR (occurrence: BR)
  Receive Date: 20220606
  Receipt Date: 20220606
  Transmission Date: 20220720
  Serious: Yes (Hospitalization, Other)
  Sender: FDA-Public Use
  Company Number: BR-Merck Healthcare KGaA-9326014

PATIENT
  Age: 48 Year
  Sex: Male
  Weight: 79 kg

DRUGS (8)
  1. ERBITUX [Suspect]
     Active Substance: CETUXIMAB
     Indication: Hypopharyngeal neoplasm
     Dosage: 400 MG/M2, UNKNOWN
     Route: 042
     Dates: start: 20220112
  2. DOCETAXEL [Suspect]
     Active Substance: DOCETAXEL
     Indication: Hypopharyngeal neoplasm
     Dosage: 75 MG/M2, UNKNOWN
     Route: 065
     Dates: start: 20220112
  3. DOCETAXEL [Suspect]
     Active Substance: DOCETAXEL
     Dosage: 75 MG/M2, UNKNOWN
     Route: 042
  4. CISPLATIN [Suspect]
     Active Substance: CISPLATIN
     Indication: Hypopharyngeal neoplasm
     Dosage: 75 MG/M2, UNKNOWN
     Route: 042
     Dates: start: 20220112
  5. FOSAPREPITANT [Concomitant]
     Active Substance: FOSAPREPITANT
     Indication: Premedication
     Dosage: 150 MG, UNKNOWN
     Route: 042
     Dates: start: 20201015
  6. ONDANSETRON HYDROCHLORIDE [Concomitant]
     Active Substance: ONDANSETRON HYDROCHLORIDE
     Indication: Premedication
     Dosage: 16 MG, UNKNOWN
     Route: 042
     Dates: start: 20201015
  7. DEXAMETHASONE [Concomitant]
     Active Substance: DEXAMETHASONE
     Indication: Product used for unknown indication
     Dosage: 12 MG, UNKNOWN
     Dates: start: 20201015
  8. PEGFILGRASTIM [Concomitant]
     Active Substance: PEGFILGRASTIM
     Indication: Hypopharyngeal neoplasm
     Dosage: UNK UNK, UNKNOWN
     Dates: start: 20220126

REACTIONS (5)
  - Dizziness [Unknown]
  - Febrile neutropenia [Recovered/Resolved]
  - Pain [Unknown]
  - Dermatitis acneiform [Recovered/Resolved]
  - Mucosal inflammation [Unknown]

NARRATIVE: CASE EVENT DATE: 20220118
